FAERS Safety Report 9624282 (Version 1)
Quarter: 2013Q4

REPORT INFORMATION
  Report Type: Spontaneous
  Country: FR (occurrence: FR)
  Receive Date: 20131015
  Receipt Date: 20131015
  Transmission Date: 20140711
  Serious: Yes (Hospitalization)
  Sender: FDA-Public Use
  Company Number: FR-B.I. PHARMACEUTICALS,INC./RIDGEFIELD-2013-FF-02482FF

PATIENT
  Age: 78 Year
  Sex: Male

DRUGS (9)
  1. PRADAXA [Suspect]
     Indication: ATRIAL FIBRILLATION
     Dosage: 220 MG
     Route: 048
     Dates: start: 20130313
  2. PRADAXA [Suspect]
     Dosage: 220 MG
     Route: 048
  3. KARDEGIC [Concomitant]
  4. LASILIX [Concomitant]
  5. RAMIPRIL [Concomitant]
  6. INSPRA [Concomitant]
  7. CORDARONE [Concomitant]
  8. TAHOR [Concomitant]
  9. BISOCE [Concomitant]

REACTIONS (5)
  - Nausea [Recovered/Resolved]
  - Vomiting [Recovered/Resolved]
  - Hyperhidrosis [Recovered/Resolved]
  - Contusion [Not Recovered/Not Resolved]
  - Drug administration error [Recovered/Resolved]
